FAERS Safety Report 8360127-9 (Version None)
Quarter: 2012Q2

REPORT INFORMATION
  Report Type: 
  Country: None (occurrence: None)
  Receive Date: 20120515
  Receipt Date: 20120509
  Transmission Date: 20120825
  Serious: Yes (Disabling, Other)
  Sender: FDA-Public Use
  Company Number: PHEH2012US008866

PATIENT
  Sex: Female
  Weight: 157.37 kg

DRUGS (1)
  1. TASIGNA [Suspect]
     Indication: CHRONIC MYELOID LEUKAEMIA
     Dosage: 400 MG, BID
     Dates: start: 20110601

REACTIONS (6)
  - FIBULA FRACTURE [None]
  - HAEMATOMA [None]
  - LACERATION [None]
  - ACCIDENT [None]
  - LIGAMENT SPRAIN [None]
  - CONTUSION [None]
